FAERS Safety Report 9471753 (Version 1)
Quarter: 2013Q3

REPORT INFORMATION
  Report Type: Spontaneous
  Country: CA (occurrence: CA)
  Receive Date: 20130822
  Receipt Date: 20130822
  Transmission Date: 20140515
  Serious: Yes (Other)
  Sender: FDA-Public Use
  Company Number: CA-GLAXOSMITHKLINE-A1038232A

PATIENT
  Sex: Male

DRUGS (1)
  1. ZYBAN [Suspect]
     Indication: EX-TOBACCO USER
     Route: 065

REACTIONS (3)
  - Suicidal ideation [Unknown]
  - Depression [Unknown]
  - Mental disorder [Unknown]
